FAERS Safety Report 22730230 (Version 3)
Quarter: 2025Q4

REPORT INFORMATION
  Report Type: Spontaneous
  Country: AU (occurrence: AU)
  Receive Date: 20230720
  Receipt Date: 20251007
  Transmission Date: 20260117
  Serious: Yes (Hospitalization)
  Sender: NOVARTIS
  Company Number: AU-002147023-NVSC2023AU156275

PATIENT
  Sex: Female

DRUGS (30)
  1. MIRTAZAPINE [Suspect]
     Active Substance: MIRTAZAPINE
     Indication: Depression
     Dosage: UNK
     Route: 065
  2. CARBAMAZEPINE [Suspect]
     Active Substance: CARBAMAZEPINE
     Indication: Schizoaffective disorder
     Dosage: UNK
     Route: 065
  3. QUETIAPINE [Suspect]
     Active Substance: QUETIAPINE
     Indication: Schizoaffective disorder
     Dosage: 750 MG, Q2MO (MODIFIED-RELEASE TABLET)
     Route: 065
  4. QUETIAPINE [Suspect]
     Active Substance: QUETIAPINE
     Indication: Agitation
     Dosage: 25 MG, QID (100 MG QD)
     Route: 048
  5. QUETIAPINE [Suspect]
     Active Substance: QUETIAPINE
     Indication: Agitation
     Dosage: 200 MG, QD (IN THE MORNING)
     Route: 048
  6. QUETIAPINE [Suspect]
     Active Substance: QUETIAPINE
     Indication: Short-chain acyl-coenzyme A dehydrogenase deficiency
     Dosage: 4 DOSAGE FORM, QD AT MIDDAY
     Route: 048
  7. QUETIAPINE [Suspect]
     Active Substance: QUETIAPINE
     Dosage: 400 MG, QD (IN THE EVENING)
     Route: 048
  8. QUETIAPINE [Suspect]
     Active Substance: QUETIAPINE
     Dosage: 50 MG, QD DAILY AT NIGHT
     Route: 048
  9. VALPROATE SODIUM [Suspect]
     Active Substance: VALPROATE SODIUM
     Indication: Schizoaffective disorder
     Dosage: 1000 MG, BID (2000 MG QD)
     Route: 065
  10. VALPROATE SODIUM [Suspect]
     Active Substance: VALPROATE SODIUM
     Indication: Parkinsonian crisis
  11. TIMOLOL MALEATE [Suspect]
     Active Substance: TIMOLOL MALEATE
     Indication: Product used for unknown indication
     Dosage: UNK
     Route: 065
  12. SODIUM HYALURONATE [Concomitant]
     Active Substance: HYALURONATE SODIUM
     Indication: Glaucoma
     Dosage: 1 DOSAGE FORM, BID (BOTH EYES), PRN FOR DRY EYES
     Route: 047
  13. SODIUM HYALURONATE [Concomitant]
     Active Substance: HYALURONATE SODIUM
     Dosage: 1 DOSAGE FORM, BID (BOTH EYES)
     Route: 047
  14. HYALURONATE SODIUM [Concomitant]
     Active Substance: HYALURONATE SODIUM
     Indication: Glaucoma
     Dosage: 1 DOSAGE FORM, BID (BOTH EYES, 2 DOSAGE FORM)
     Route: 065
  15. ACETAMINOPHEN [Concomitant]
     Active Substance: ACETAMINOPHEN
     Indication: Product used for unknown indication
     Dosage: 2 DOSAGE FORM, TID (6 DOSAGE FORM)
     Route: 048
  16. PANTOPRAZOLE [Concomitant]
     Active Substance: PANTOPRAZOLE
     Indication: Product used for unknown indication
     Dosage: 1 DOSAGE FORM, QD,  IN THE EVENING
     Route: 048
  17. MAGNESIUM ASPARTATE [Concomitant]
     Active Substance: MAGNESIUM ASPARTATE
     Indication: Blood magnesium
     Dosage: 2 DOSAGE FORM, QD, Y (WITH OR AFTER FOOD)
     Route: 048
  18. MAGNESIUM ASPARTATE [Concomitant]
     Active Substance: MAGNESIUM ASPARTATE
     Indication: Blood magnesium abnormal
  19. MELATONIN [Concomitant]
     Active Substance: MELATONIN
     Indication: Product used for unknown indication
     Dosage: 1 DOSAGE FORM, QD (AT NIGHT)
     Route: 048
  20. LEVOTHYROXINE SODIUM [Concomitant]
     Active Substance: LEVOTHYROXINE SODIUM
     Indication: Product used for unknown indication
     Dosage: 1 DOSAGE FORM,  IN THE  MORNING (BEFORE FOOD)
     Route: 048
  21. LINAGLIPTIN [Concomitant]
     Active Substance: LINAGLIPTIN
     Indication: Product used for unknown indication
     Dosage: 1 DOSAGE FORM, QD, IN THE MORNING
     Route: 048
  22. MOVICOL [Concomitant]
     Active Substance: POLYETHYLENE GLYCOL 3350\POTASSIUM CHLORIDE\SODIUM BICARBONATE\SODIUM CHLORIDE
     Indication: Constipation
     Dosage: 2 DOSAGE FORM, BID, PRN (3350 WITH ELECTROLYTES (MOVICOL) POWDER FOR RECONSTITUTION
     Route: 048
  23. SINEMET [Concomitant]
     Active Substance: CARBIDOPA\LEVODOPA
     Indication: Product used for unknown indication
     Dosage: 0.5 MG, QID ((SINEMET 100 MG-25 MG)
     Route: 048
  24. LATANOPROST [Concomitant]
     Active Substance: LATANOPROST
     Indication: Glaucoma
     Dosage: 1 DOSAGE FORM, QD (LATANOPROST-TIMOLOL 0.005%-0.5% EYE DROPS), 1 DOSAGE FORM, QD (AT NIGHT)
     Route: 047
  25. EMPAGLIFLOZIN\METFORMIN HYDROCHLORIDE [Concomitant]
     Active Substance: EMPAGLIFLOZIN\METFORMIN HYDROCHLORIDE
     Indication: Product used for unknown indication
     Dosage: 1 DOSAGE FORM, BID (12.5 MG-1000 MG
     Route: 048
  26. CHOLECALCIFEROL [Concomitant]
     Active Substance: CHOLECALCIFEROL
     Indication: Product used for unknown indication
     Dosage: 1 DOSAGE FORM, QD (1000 UNITS) , 1 DOSAGE FORM, QD (IN MORNING)
     Route: 048
  27. ATORVASTATIN [Concomitant]
     Active Substance: ATORVASTATIN
     Indication: Product used for unknown indication
     Dosage: 1 DOSAGE FORM, QD (IN THE EVENING, STRENGTH- 20, 80 40 10 MG)
     Route: 048
  28. ASPIRIN [Concomitant]
     Active Substance: ASPIRIN
     Indication: Product used for unknown indication
     Dosage: 1 DOSAGE FORM, MORNING (WITH OR AFTER FOOD)
     Route: 048
  29. ASCORBIC ACID [Concomitant]
     Active Substance: ASCORBIC ACID
     Indication: Product used for unknown indication
     Dosage: 1 DOSAGE FORM, QD (AT NIGHT)
     Route: 048
  30. FLUDROCORTISONE [Concomitant]
     Active Substance: FLUDROCORTISONE
     Indication: Product used for unknown indication
     Dosage: 1 DOSAGE FORM (MORNING (WITH OR AFTER FOOD)
     Route: 048

REACTIONS (9)
  - Depression [Unknown]
  - Abnormal behaviour [Unknown]
  - Delusion [Unknown]
  - Drug ineffective [Unknown]
  - Cyclothymic disorder [Unknown]
  - Aspartate aminotransferase increased [Unknown]
  - Gamma-glutamyltransferase increased [Unknown]
  - Blood alkaline phosphatase increased [Unknown]
  - Glomerular filtration rate increased [Unknown]
